FAERS Safety Report 24848921 (Version 2)
Quarter: 2025Q1

REPORT INFORMATION
  Report Type: Spontaneous
  Country: US (occurrence: US)
  Receive Date: 20250116
  Receipt Date: 20250122
  Transmission Date: 20250409
  Serious: No
  Sender: ELI LILLY AND COMPANY
  Company Number: US-ELI_LILLY_AND_COMPANY-US202501010277

PATIENT
  Age: 73 Year
  Sex: Female

DRUGS (1)
  1. ZEPBOUND [Suspect]
     Active Substance: TIRZEPATIDE
     Indication: Weight control
     Dosage: 2.5 MG, WEEKLY (1/W)
     Route: 058
     Dates: start: 20241229, end: 20250105

REACTIONS (8)
  - Wrong technique in product usage process [Unknown]
  - Feeding disorder [Unknown]
  - Sleep disorder due to general medical condition, insomnia type [Unknown]
  - Abdominal pain upper [Unknown]
  - Malaise [Unknown]
  - Nausea [Unknown]
  - Flatulence [Unknown]
  - Eructation [Unknown]

NARRATIVE: CASE EVENT DATE: 20241229
